FAERS Safety Report 9535578 (Version 1)
Quarter: 2013Q3

REPORT INFORMATION
  Report Type: Spontaneous
  Country: US (occurrence: US)
  Receive Date: 20130919
  Receipt Date: 20130919
  Transmission Date: 20140515
  Serious: No
  Sender: FDA-Public Use
  Company Number: US-B.I. PHARMACEUTICALS,INC./RIDGEFIELD-2013-BI-28436BP

PATIENT
  Age: 5 Decade
  Sex: Female

DRUGS (1)
  1. PRADAXA [Suspect]
     Indication: COAGULOPATHY
     Route: 048
     Dates: end: 2013

REACTIONS (3)
  - Abdominal discomfort [Unknown]
  - Diarrhoea [Unknown]
  - Off label use [Unknown]
